FAERS Safety Report 9361997 (Version 1)
Quarter: 2013Q2

REPORT INFORMATION
  Report Type: Spontaneous
  Country: PH (occurrence: PH)
  Receive Date: 20130621
  Receipt Date: 20130621
  Transmission Date: 20140414
  Serious: Yes (Hospitalization)
  Sender: FDA-Public Use
  Company Number: PH-ABBOTT-13P-128-1108642-00

PATIENT
  Age: 38 Year
  Sex: Female

DRUGS (2)
  1. LUPROLEX [Suspect]
     Indication: UTERINE LEIOMYOMA
     Route: 058
     Dates: start: 2009
  2. LUPROLEX [Suspect]
     Route: 058

REACTIONS (3)
  - Haemorrhage [Unknown]
  - Arthralgia [Unknown]
  - Deep vein thrombosis [Unknown]
